FAERS Safety Report 5508105-9 (Version None)
Quarter: 2007Q4

REPORT INFORMATION
  Report Type: 
  Country: None (occurrence: None)
  Receive Date: 20071106
  Receipt Date: 20071025
  Transmission Date: 20080405
  Serious: Yes (Other)
  Sender: FDA-Public Use
  Company Number: US-PFIZER INC-2007070988

PATIENT
  Sex: Female
  Weight: 66.7 kg

DRUGS (3)
  1. XALATAN [Suspect]
     Indication: GLAUCOMA
     Dates: start: 19960101, end: 20070601
  2. SYNTHROID [Concomitant]
     Indication: THYROID DISORDER
  3. ZETIA [Concomitant]
     Indication: BLOOD CHOLESTEROL

REACTIONS (1)
  - CATARACT OPERATION [None]
